FAERS Safety Report 23579166 (Version 2)
Quarter: 2024Q1

REPORT INFORMATION
  Report Type: Report from Study
  Country: US (occurrence: US)
  Receive Date: 20240229
  Receipt Date: 20240320
  Transmission Date: 20240410
  Serious: No
  Sender: FDA-Public Use
  Company Number: US-BIOVITRUM-2024-US-003164

PATIENT
  Age: 55 Year
  Sex: Female

DRUGS (1)
  1. KINERET [Suspect]
     Active Substance: ANAKINRA
     Indication: Rheumatoid arthritis
     Dosage: DAILY
     Route: 058
     Dates: start: 20240220

REACTIONS (6)
  - Injection site pain [Unknown]
  - Fatigue [Unknown]
  - Limb discomfort [Unknown]
  - Pain [Unknown]
  - Injection site reaction [Recovering/Resolving]
  - Urticaria [Unknown]
